FAERS Safety Report 5857607-4 (Version None)
Quarter: 2008Q3

REPORT INFORMATION
  Report Type: 
  Country: None (occurrence: None)
  Receive Date: 20080825
  Receipt Date: 20080825
  Transmission Date: 20090109
  Serious: Yes (Life-Threatening, Hospitalization, Other)
  Sender: FDA-Public Use
  Company Number: None

PATIENT
  Age: 28 Year
  Sex: Female
  Weight: 68.0396 kg

DRUGS (1)
  1. XANAX [Suspect]
     Indication: PANIC ATTACK
     Dosage: UP TO .75MG 2X'S/DAY PO
     Route: 048
     Dates: start: 20050101, end: 20070501

REACTIONS (16)
  - ANOREXIA [None]
  - ANXIETY [None]
  - BLOOD PRESSURE INCREASED [None]
  - CRYING [None]
  - DELIRIUM [None]
  - DEPRESSION [None]
  - DRUG WITHDRAWAL SYNDROME [None]
  - FEELING ABNORMAL [None]
  - HALLUCINATION [None]
  - HEART RATE INCREASED [None]
  - IMPAIRED WORK ABILITY [None]
  - INCORRECT DRUG ADMINISTRATION DURATION [None]
  - INSOMNIA [None]
  - PANIC ATTACK [None]
  - PERSONALITY CHANGE [None]
  - VERTIGO [None]
